FAERS Safety Report 9049072 (Version 1)
Quarter: 2013Q1

REPORT INFORMATION
  Report Type: Spontaneous
  Country: US (occurrence: None)
  Receive Date: 20130129
  Receipt Date: 20130129
  Transmission Date: 20140127
  Serious: Yes (Other)
  Sender: FDA-Public Use
  Company Number: None

PATIENT
  Age: 59 Year
  Sex: Female

DRUGS (7)
  1. ESCITALOPRAM [Suspect]
     Indication: MAJOR DEPRESSION
     Dosage: 1 TAB 2  DAY  ONGOING
  2. DILTIAZEM [Concomitant]
  3. AMITRIPTYLINE [Concomitant]
  4. LEXOSE [Concomitant]
  5. CRESTOR [Concomitant]
  6. FLONASE [Concomitant]
  7. BEBER ASA [Concomitant]

REACTIONS (2)
  - Drug ineffective [None]
  - Product substitution issue [None]
